FAERS Safety Report 14949055 (Version 3)
Quarter: 2018Q3

REPORT INFORMATION
  Report Type: Spontaneous
  Country: JP (occurrence: JP)
  Receive Date: 20180529
  Receipt Date: 20180801
  Transmission Date: 20181010
  Serious: Yes (Disabling)
  Sender: FDA-Public Use
  Company Number: JP-OTSUKA-2018_013623

PATIENT
  Age: 16 Year
  Sex: Female

DRUGS (9)
  1. AMANTADINE HYDROCHLORIDE. [Concomitant]
     Active Substance: AMANTADINE HYDROCHLORIDE
     Indication: PRODUCT USED FOR UNKNOWN INDICATION
     Dosage: 300 MG, DAILY DOSE
     Route: 048
     Dates: start: 20180516, end: 20180517
  2. SEROQUEL [Suspect]
     Active Substance: QUETIAPINE FUMARATE
     Indication: PRODUCT USED FOR UNKNOWN INDICATION
     Dosage: UNK
     Route: 048
     Dates: end: 20180511
  3. ZONISAMIDE. [Concomitant]
     Active Substance: ZONISAMIDE
     Indication: PRODUCT USED FOR UNKNOWN INDICATION
     Dosage: 57 MG, DAILY DOSE
     Route: 048
     Dates: start: 20180516, end: 20180517
  4. REXULTI [Suspect]
     Active Substance: BREXPIPRAZOLE
     Indication: SCHIZOPHRENIA
     Dosage: 1 MG, DAILY DOSE
     Route: 048
     Dates: start: 20180516, end: 20180517
  5. CONTOMIN [Suspect]
     Active Substance: CHLORPROMAZINE
     Indication: PRODUCT USED FOR UNKNOWN INDICATION
     Dosage: 50 MG, DAILY DOSE
     Route: 048
     Dates: start: 20180416, end: 20180517
  6. TRAZODONE HYDROCHLORIDE. [Concomitant]
     Active Substance: TRAZODONE HYDROCHLORIDE
     Indication: PRODUCT USED FOR UNKNOWN INDICATION
     Dosage: 100 MG, DAILY DOSE
     Route: 048
     Dates: start: 20180122, end: 20180517
  7. RIVOTRIL [Concomitant]
     Active Substance: CLONAZEPAM
     Indication: PRODUCT USED FOR UNKNOWN INDICATION
     Dosage: 1.5 MG, DAILY DOSE
     Route: 048
     Dates: start: 20180122, end: 20180517
  8. LITHIUM CARBONATE. [Concomitant]
     Active Substance: LITHIUM CARBONATE
     Indication: PRODUCT USED FOR UNKNOWN INDICATION
     Dosage: 400 MG, DAILY DOSE
     Route: 048
     Dates: start: 20180502, end: 20180517
  9. NITRAZEPAM [Concomitant]
     Active Substance: NITRAZEPAM
     Indication: PRODUCT USED FOR UNKNOWN INDICATION
     Dosage: 10 MG, DAILY DOSE
     Route: 048
     Dates: start: 20180122, end: 20180517

REACTIONS (1)
  - Tardive dyskinesia [Not Recovered/Not Resolved]

NARRATIVE: CASE EVENT DATE: 20180517
